FAERS Safety Report 5637600-7 (Version None)
Quarter: 2008Q1

REPORT INFORMATION
  Report Type: 
  Country: None (occurrence: None)
  Receive Date: 20080225
  Receipt Date: 20080215
  Transmission Date: 20080703
  Serious: Yes (Other)
  Sender: FDA-Public Use
  Company Number: FR-PFIZER INC-2008015429

PATIENT
  Sex: Male

DRUGS (3)
  1. XALATAN [Suspect]
     Indication: GLAUCOMA
  2. MONTELUKAST SODIUM [Concomitant]
     Indication: ASTHMA
  3. SERETIDE [Concomitant]
     Indication: ASTHMA

REACTIONS (1)
  - ECZEMA [None]
